FAERS Safety Report 11898209 (Version 1)
Quarter: 2016Q1

REPORT INFORMATION
  Report Type: Spontaneous
  Country: US (occurrence: None)
  Receive Date: 20160107
  Receipt Date: 20160107
  Transmission Date: 20160526
  Serious: No
  Sender: FDA-Public Use
  Company Number: None

PATIENT
  Age: 67 Year
  Sex: Male
  Weight: 90.4 kg

DRUGS (1)
  1. LURASIDONE [Suspect]
     Active Substance: LURASIDONE
     Indication: BIPOLAR I DISORDER
     Route: 048
     Dates: start: 20151218, end: 20151229

REACTIONS (3)
  - Drug intolerance [None]
  - Somnambulism [None]
  - Abnormal dreams [None]

NARRATIVE: CASE EVENT DATE: 20151229
